FAERS Safety Report 13077044 (Version 1)
Quarter: 2016Q4

REPORT INFORMATION
  Report Type: Spontaneous
  Country: IT (occurrence: IT)
  Receive Date: 20161230
  Receipt Date: 20161230
  Transmission Date: 20170207
  Serious: Yes (Death)
  Sender: FDA-Public Use
  Company Number: IT-SA-2016SA234072

PATIENT
  Age: 31 Year
  Sex: Male

DRUGS (10)
  1. RIFINAH [Suspect]
     Active Substance: ISONIAZID\RIFAMPIN
     Indication: DISSEMINATED TUBERCULOSIS
     Dosage: DOSE STRENGTH- 300 MG +150 MG DOSE:2 UNIT(S)
     Route: 048
     Dates: start: 20090430, end: 20091106
  2. BACTRIM [Concomitant]
     Active Substance: SULFAMETHOXAZOLE\TRIMETHOPRIM
     Dosage: 160 MG + 800 MG TABLETS DOSE:1 UNIT(S)
     Route: 048
  3. SELEPARINA [Concomitant]
     Active Substance: NADROPARIN CALCIUM
     Indication: THROMBOSIS
     Dosage: 3.800 IU ANTIXA / 0.4 ML SOLUTION FOR INJECTION DOSE:1 UNIT(S)
     Route: 058
     Dates: start: 20090510, end: 20090709
  4. LEXOTAN [Concomitant]
     Active Substance: BROMAZEPAM
     Dosage: FORM: DROPS
     Route: 048
     Dates: start: 20160512, end: 20161106
  5. TRUVADA [Concomitant]
     Active Substance: EMTRICITABINE\TENOFOVIR DISOPROXIL FUMARATE
     Indication: ANTIRETROVIRAL THERAPY
     Dosage: 200 MG/ 245 MG FILM COATED TABLET DOSE:1 UNIT(S)
     Route: 048
     Dates: start: 20090504, end: 20091109
  6. GRANULOKINE [Concomitant]
     Active Substance: FILGRASTIM
     Indication: PANCYTOPENIA
     Dosage: 2.5MG/ML ORAL DROPS, SOLUTION
     Route: 058
     Dates: start: 20090512, end: 20091106
  7. ETAPIAM [Suspect]
     Active Substance: ETHAMBUTOL HYDROCHLORIDE
     Indication: DISSEMINATED TUBERCULOSIS
     Dosage: DOSE STRENGTH- 400 MG
     Route: 048
     Dates: start: 20090430, end: 20091106
  8. ANTRA [Concomitant]
     Active Substance: OMEPRAZOLE
     Dosage: 20 MG GASTRO-RESISTANT HARD CAPSULES
     Route: 048
     Dates: start: 20090512, end: 20091106
  9. SUSTIVA [Concomitant]
     Active Substance: EFAVIRENZ
     Indication: ANTIRETROVIRAL THERAPY
     Dosage: 600 MG FILM COATED TABLET FOR ORAL USE
     Route: 048
     Dates: start: 20160504, end: 20160603
  10. VALCYTE [Concomitant]
     Active Substance: VALGANCICLOVIR HYDROCHLORIDE
     Indication: CYTOMEGALOVIRUS INFECTION
     Route: 048
     Dates: start: 20090425, end: 20091106

REACTIONS (4)
  - Pancreatitis [Fatal]
  - Alanine aminotransferase increased [Fatal]
  - Hepatitis [Fatal]
  - Aspartate aminotransferase increased [Fatal]

NARRATIVE: CASE EVENT DATE: 20090623
